FAERS Safety Report 13254586 (Version 3)
Quarter: 2017Q4

REPORT INFORMATION
  Report Type: Report from Study
  Country: US (occurrence: US)
  Receive Date: 20170221
  Receipt Date: 20171222
  Transmission Date: 20180320
  Serious: No
  Sender: FDA-Public Use
  Company Number: PHEH2017US005182

PATIENT
  Sex: Female

DRUGS (2)
  1. COSENTYX [Suspect]
     Active Substance: SECUKINUMAB
     Dosage: 150 MG, QMO
     Route: 058
  2. COSENTYX [Suspect]
     Active Substance: SECUKINUMAB
     Indication: ANKYLOSING SPONDYLITIS
     Dosage: 300 MG, QW
     Route: 065
     Dates: start: 20170207

REACTIONS (7)
  - Fatigue [Unknown]
  - Insomnia [Unknown]
  - Palpitations [Unknown]
  - Chest discomfort [Unknown]
  - Blood pressure increased [Unknown]
  - Malaise [Not Recovered/Not Resolved]
  - Butterfly rash [Unknown]
